FAERS Safety Report 16687991 (Version 1)
Quarter: 2019Q4

REPORT INFORMATION
  Report Type: Spontaneous
  Country: US (occurrence: US)
  Receive Date: 20190808
  Receipt Date: 20190808
  Transmission Date: 20200122
  Serious: Yes (Disabling)
  Sender: FDA-Public Use
  Company Number: None

PATIENT
  Age: 55 Year
  Sex: Female

DRUGS (2)
  1. TAXOL [Concomitant]
     Active Substance: PACLITAXEL
  2. HERCEPTIN [Suspect]
     Active Substance: TRASTUZUMAB
     Indication: BREAST CANCER STAGE III
     Dosage: ?          OTHER FREQUENCY:EVERY 3 WEEKS;?
     Dates: end: 20130701

REACTIONS (2)
  - Cardiomyopathy [None]
  - Cardiac failure congestive [None]

NARRATIVE: CASE EVENT DATE: 20130701
